FAERS Safety Report 10256013 (Version 1)
Quarter: 2014Q2

REPORT INFORMATION
  Report Type: Spontaneous
  Country: US (occurrence: None)
  Receive Date: 20140530
  Receipt Date: 20140530
  Transmission Date: 20141212
  Serious: Yes (Hospitalization)
  Sender: FDA-Public Use
  Company Number: 2013036512

PATIENT
  Sex: Female
  Weight: 92.08 kg

DRUGS (10)
  1. HIZENTRA (IMMUNOGLOBULIN HUMAN NORMAL) [Suspect]
     Indication: IMMUNODEFICIENCY COMMON VARIABLE
     Dosage: 1X/WEEK SUBCUTANEOUS
     Route: 058
  2. DETROL (TOLTERODINE L-TARTRATE) [Concomitant]
  3. AMBIEN (ZOLPIDEM TARTRATE) [Concomitant]
  4. TYLENOL (PARACETAMOL) [Concomitant]
  5. SIMVASTATIN (SIMVASTATIN) [Concomitant]
  6. HYDROXYCHLOROQUINE (HYDROXYCHLOROQUINE) [Concomitant]
  7. METOPROLOL (METOPROLOL) [Concomitant]
  8. SPIRONOLACTONE (SPIRONOLACTONE) [Concomitant]
  9. AGGRENOX (ASASANTIN) [Concomitant]
  10. RANITIDINE (RANITIDINE) [Concomitant]

REACTIONS (1)
  - Pyrexia [None]
